FAERS Safety Report 4425658-2 (Version None)
Quarter: 2004Q3

REPORT INFORMATION
  Report Type: 
  Country: None (occurrence: None)
  Receive Date: 20040809
  Receipt Date: 20040729
  Transmission Date: 20050211
  Serious: Yes (Other)
  Sender: FDA-Public Use
  Company Number: S04-USA-04077-01

PATIENT
  Age: 43 Year
  Sex: Female

DRUGS (2)
  1. LEXAPRO [Suspect]
     Indication: DEPRESSION
     Dosage: 10 MG QD PO
     Route: 048
     Dates: start: 20030326, end: 20040609
  2. WELLBUTRIN XL [Suspect]
     Indication: DEPRESSION
     Dosage: 450 MG QD
     Dates: start: 20040319, end: 20040609

REACTIONS (6)
  - AMNESIA [None]
  - COMA [None]
  - CONFUSIONAL STATE [None]
  - EYE ROLLING [None]
  - GRAND MAL CONVULSION [None]
  - TONGUE BITING [None]
